FAERS Safety Report 10204071 (Version 2)
Quarter: 2014Q2

REPORT INFORMATION
  Report Type: Report from Study
  Country: BE (occurrence: BE)
  Receive Date: 20140529
  Receipt Date: 20140529
  Transmission Date: 20141212
  Serious: Yes (Hospitalization)
  Sender: FDA-Public Use
  Company Number: PHHO2014BE007583

PATIENT
  Sex: 0

DRUGS (3)
  1. BLINDED LUCENTIS [Suspect]
     Indication: MACULAR OEDEMA
     Dosage: CODE NOT BROKEN
     Route: 031
     Dates: start: 20140328, end: 20140328
  2. BLINDED NO TREATMENT RECEIVED [Suspect]
     Indication: MACULAR OEDEMA
     Dosage: CODE NOT BROKEN
     Route: 031
     Dates: start: 20140328, end: 20140328
  3. BLINDED PLACEBO [Suspect]
     Indication: MACULAR OEDEMA
     Dosage: CODE NOT BROKEN
     Route: 031
     Dates: start: 20140328, end: 20140328

REACTIONS (1)
  - Nephrolithiasis [Recovered/Resolved]
